FAERS Safety Report 6540264-1 (Version None)
Quarter: 2010Q1

REPORT INFORMATION
  Report Type: 
  Country: None (occurrence: None)
  Receive Date: 20100115
  Receipt Date: 20090106
  Transmission Date: 20100710
  Serious: No
  Sender: FDA-Public Use
  Company Number: US-ABBOTT-09P-163-0496355-00

PATIENT
  Sex: Female
  Weight: 63.56 kg

DRUGS (1)
  1. ADVICOR [Suspect]
     Indication: LOW DENSITY LIPOPROTEIN INCREASED
     Dosage: 1000/40 MG
     Dates: start: 20050101, end: 20081225

REACTIONS (3)
  - HEADACHE [None]
  - PRURITUS [None]
  - RASH [None]
